FAERS Safety Report 4474655-X (Version None)
Quarter: 2004Q4

REPORT INFORMATION
  Report Type: 
  Country: None (occurrence: None)
  Receive Date: 20041012
  Receipt Date: 20040930
  Transmission Date: 20050328
  Serious: Yes (Hospitalization)
  Sender: FDA-Public Use
  Company Number: 2004PK01612

PATIENT
  Age: 79 Year
  Sex: Male

DRUGS (3)
  1. NEXIUM [Suspect]
     Indication: PROPHYLAXIS AGAINST GASTROINTESTINAL ULCER
     Dosage: 40 MG DAILY PO
     Route: 048
     Dates: start: 20040201
  2. PLAVIX [Suspect]
     Indication: THROMBOSIS PROPHYLAXIS
     Dosage: 75 MG DAILY
     Dates: start: 20040201, end: 20040703
  3. CARBIUM [Concomitant]

REACTIONS (7)
  - BLOOD PRESSURE SYSTOLIC INCREASED [None]
  - CARDIAC FAILURE [None]
  - DRUG INTERACTION [None]
  - FEEDING TUBE COMPLICATION [None]
  - GASTRITIS EROSIVE [None]
  - GASTROINTESTINAL ULCER HAEMORRHAGE [None]
  - PNEUMONIA [None]
